FAERS Safety Report 20687131 (Version 1)
Quarter: 2022Q2

REPORT INFORMATION
  Report Type: Spontaneous
  Country: ES (occurrence: ES)
  Receive Date: 20220407
  Receipt Date: 20220407
  Transmission Date: 20220721
  Serious: Yes (Death, Other)
  Sender: FDA-Public Use
  Company Number: None

PATIENT
  Age: 89 Year
  Sex: Female

DRUGS (5)
  1. ACETAMINOPHEN\TRAMADOL [Suspect]
     Active Substance: ACETAMINOPHEN\TRAMADOL
     Indication: Arthralgia
     Dosage: 1 DOSAGE FORM, EVERY 8 HRS
     Route: 048
     Dates: start: 2019
  2. CEFDITOREN [Concomitant]
     Active Substance: CEFDITOREN
     Indication: Urinary tract infection
     Dosage: 1 DOSAGE FORM, 1/DAY
     Route: 048
     Dates: start: 20210902
  3. RIVASTIGMINE [Concomitant]
     Active Substance: RIVASTIGMINE
     Indication: Dementia
     Dosage: 1 DOSAGE FORM, 1/DAY
     Route: 062
     Dates: start: 2019
  4. VENLAFAXINE HYDROCHLORIDE [Concomitant]
     Active Substance: VENLAFAXINE HYDROCHLORIDE
     Indication: Depression
     Dosage: 1 DOSAGE FORM, 1/DAY
     Route: 048
     Dates: start: 2012
  5. MIRTAZAPINE [Concomitant]
     Active Substance: MIRTAZAPINE
     Indication: Insomnia
     Dosage: 1 DOSAGE FORM, 1/DAY
     Route: 048
     Dates: start: 2012

REACTIONS (1)
  - Seizure [Fatal]

NARRATIVE: CASE EVENT DATE: 20210902
